FAERS Safety Report 6279161-8 (Version None)
Quarter: 2009Q3

REPORT INFORMATION
  Report Type: 
  Country: None (occurrence: None)
  Receive Date: 20090723
  Receipt Date: 20090715
  Transmission Date: 20100115
  Serious: Yes (Other)
  Sender: FDA-Public Use
  Company Number: US-ROCHE-633463

PATIENT
  Sex: Male
  Weight: 73 kg

DRUGS (11)
  1. CAPECITABINE [Suspect]
     Indication: COLORECTAL CANCER
     Route: 048
     Dates: start: 20090421
  2. CAPECITABINE [Suspect]
     Dosage: DOSE: 2 AFTER BREAKFAST AND 2 AFTER DINNER
     Route: 048
  3. DIGOXIN [Suspect]
     Indication: DRUG USE FOR UNKNOWN INDICATION
     Route: 065
     Dates: start: 20090116
  4. ATENOLOL [Suspect]
     Indication: DRUG USE FOR UNKNOWN INDICATION
     Route: 065
     Dates: start: 20090116
  5. AMIODARONE [Concomitant]
     Route: 048
  6. ASPIRIN [Concomitant]
     Route: 048
  7. ATENOLOL [Concomitant]
     Route: 048
  8. DARVOCET-N 100 [Concomitant]
     Dosage: DOSE: 100/325 MG EVERY 4-6 HR AS NEEDED
     Route: 048
  9. EXFORGE [Concomitant]
     Dosage: DOSE: 5/160 MG DAILY
     Route: 048
  10. FLECAINIDE ACETATE [Concomitant]
     Route: 048
  11. IRON [Concomitant]
     Dosage: WITH MEALS
     Route: 048

REACTIONS (1)
  - HEART RATE DECREASED [None]
